FAERS Safety Report 18220808 (Version 1)
Quarter: 2020Q3

REPORT INFORMATION
  Report Type: Spontaneous
  Country: GB (occurrence: GB)
  Receive Date: 20200902
  Receipt Date: 20200902
  Transmission Date: 20201103
  Serious: Yes (Other)
  Sender: FDA-Public Use
  Company Number: GB-TEVA-2020-GB-1821267

PATIENT
  Sex: Male

DRUGS (1)
  1. LANSOPRAZOLE 30MG GASTRO?RESISTANT CAPSULES [Suspect]
     Active Substance: LANSOPRAZOLE
     Dosage: 1 DOSAGE FORMS DAILY; AT NIGHT
     Route: 065

REACTIONS (3)
  - Product dispensing error [Unknown]
  - Choking [Recovered/Resolved]
  - Incorrect product formulation administered [Unknown]
